FAERS Safety Report 8828165 (Version 1)
Quarter: 2012Q4

REPORT INFORMATION
  Report Type: 
  Country: GB (occurrence: GB)
  Receive Date: 20121005
  Receipt Date: 20121005
  Transmission Date: 20130627
  Serious: Yes (Hospitalization, Disabling)
  Sender: FDA-Public Use
  Company Number: GB-PFIZER INC-2012245295

PATIENT
  Age: 73 Year
  Sex: Male

DRUGS (3)
  1. AMIODARONE HCL [Suspect]
     Indication: ATRIAL FIBRILLATION
     Dosage: 200 mg, three times daily
     Route: 048
     Dates: start: 20120825
  2. AMIODARONE HCL [Suspect]
     Dosage: 200 mg, twice daily
     Route: 048
  3. AMIODARONE HCL [Suspect]
     Dosage: 200 mg, daily
     Route: 048
     Dates: end: 20120914

REACTIONS (6)
  - Neurotoxicity [Not Recovered/Not Resolved]
  - Ataxia [Not Recovered/Not Resolved]
  - Coordination abnormal [Not Recovered/Not Resolved]
  - Nystagmus [Not Recovered/Not Resolved]
  - Dysphagia [Not Recovered/Not Resolved]
  - Nervous system disorder [Not Recovered/Not Resolved]
